FAERS Safety Report 9222523 (Version 1)
Quarter: 2013Q2

REPORT INFORMATION
  Report Type: Report from Study
  Country: US (occurrence: US)
  Receive Date: 20130410
  Receipt Date: 20130410
  Transmission Date: 20140414
  Serious: Yes (Hospitalization)
  Sender: FDA-Public Use
  Company Number: US-ACTELION-A-NJ2013-81649

PATIENT
  Age: 0 Year
  Sex: Female
  Weight: 2.58 kg

DRUGS (1)
  1. VENTAVIS [Suspect]
     Indication: MATERNAL EXPOSURE DURING PREGNANCY
     Dosage: UNK
     Route: 064
     Dates: start: 20120514, end: 20120711

REACTIONS (5)
  - Jaundice neonatal [Recovered/Resolved]
  - Gastrooesophageal reflux disease [Recovered/Resolved]
  - Vomiting [Recovered/Resolved]
  - Exposure during pregnancy [Unknown]
  - Premature baby [Unknown]
